FAERS Safety Report 23834765 (Version 1)
Quarter: 2024Q2

REPORT INFORMATION
  Report Type: Spontaneous
  Country: RU (occurrence: RU)
  Receive Date: 20240509
  Receipt Date: 20240509
  Transmission Date: 20240715
  Serious: Yes (Other)
  Sender: FDA-Public Use
  Company Number: RU-009507513-2405RUS000834

PATIENT
  Sex: Female

DRUGS (2)
  1. PEMBROLIZUMAB [Suspect]
     Active Substance: PEMBROLIZUMAB
     Indication: Renal cancer
     Dosage: 200 MILLIGRAM, Q3W
     Route: 042
     Dates: start: 20230525
  2. LENVATINIB MESYLATE [Suspect]
     Active Substance: LENVATINIB MESYLATE
     Indication: Renal cancer
     Dosage: 20 MILLIGRAM, QD
     Route: 048
     Dates: start: 20230525

REACTIONS (2)
  - Immune-mediated thyroiditis [Recovering/Resolving]
  - Embolism [Recovering/Resolving]

NARRATIVE: CASE EVENT DATE: 20230101
